FAERS Safety Report 7207917-3 (Version None)
Quarter: 2010Q4

REPORT INFORMATION
  Report Type: 
  Country: None (occurrence: None)
  Receive Date: 20101221
  Receipt Date: 20101207
  Transmission Date: 20110411
  Serious: Yes (Hospitalization)
  Sender: FDA-Public Use
  Company Number: JPI-P-004904

PATIENT
  Age: 44 Year
  Sex: Male

DRUGS (4)
  1. XYREM [Suspect]
     Indication: NARCOLEPSY
     Dosage: 2.25 GM (2.25 GM, 1 IN 1 D), ORAL, (TITRATING DOSE), ORAL, 12 GM (6 GM, 2 IN 1 D), ORAL
     Route: 048
     Dates: start: 20030829
  2. XYREM [Suspect]
     Indication: NARCOLEPSY
     Dosage: 2.25 GM (2.25 GM, 1 IN 1 D), ORAL, (TITRATING DOSE), ORAL, 12 GM (6 GM, 2 IN 1 D), ORAL
     Route: 048
     Dates: start: 20100622
  3. MULTIPLE UNSPECIFIED PAIN MEDICATIONS [Concomitant]
  4. UNSPECIFIED MEDICATIONS [Concomitant]

REACTIONS (9)
  - CHOLELITHIASIS [None]
  - FEELING COLD [None]
  - GASTRIC DISORDER [None]
  - MALIGNANT NEOPLASM OF SPINAL CORD [None]
  - NIGHT SWEATS [None]
  - OEDEMA PERIPHERAL [None]
  - PAIN [None]
  - SPINAL DISORDER [None]
  - VOMITING [None]
